FAERS Safety Report 7637189-7 (Version None)
Quarter: 2011Q3

REPORT INFORMATION
  Report Type: 
  Country: None (occurrence: None)
  Receive Date: 20110726
  Receipt Date: 20110713
  Transmission Date: 20111222
  Serious: Yes (Hospitalization)
  Sender: FDA-Public Use
  Company Number: PHHY2011US49586

PATIENT
  Sex: Female

DRUGS (1)
  1. GLEEVEC [Suspect]
     Indication: GASTRIC NEOPLASM
     Dosage: 400 MG, DAILY
     Route: 048

REACTIONS (6)
  - OEDEMA PERIPHERAL [None]
  - INFECTION [None]
  - PULMONARY FUNCTION TEST DECREASED [None]
  - BLOOD PRESSURE DECREASED [None]
  - RENAL FAILURE [None]
  - RASH ERYTHEMATOUS [None]
